FAERS Safety Report 4318819-4 (Version None)
Quarter: 2004Q1

REPORT INFORMATION
  Report Type: 
  Country: None (occurrence: None)
  Receive Date: 20040318
  Receipt Date: 20031125
  Transmission Date: 20041129
  Serious: Yes (Other)
  Sender: FDA-Public Use
  Company Number: WAES 0311ESP00036

PATIENT
  Age: 63 Year
  Sex: Female
  Weight: 50 kg

DRUGS (12)
  1. [THERAPY UNSPECIFIED] [Concomitant]
  2. ACETAMINOPHEN [Concomitant]
  3. BROMPHENIRAMINE MALEATE [Concomitant]
  4. CAFFEINE [Concomitant]
  5. CARVEDILOL [Concomitant]
     Indication: HYPERTENSION
     Route: 048
     Dates: start: 20020901
  6. CARVEDILOL [Concomitant]
     Route: 048
     Dates: start: 20031016, end: 20031016
  7. CITALOPRAM HYDROBROMIDE [Concomitant]
     Indication: ANXIETY
     Route: 048
     Dates: start: 20031028
  8. DIACEREIN [Concomitant]
  9. INDAPAMIDE [Concomitant]
     Indication: HYPERTENSION
     Route: 048
     Dates: start: 20030901
  10. QUINAPRIL HYDROCHLORIDE [Concomitant]
     Indication: HYPERTENSION
     Route: 048
     Dates: start: 20030901
  11. VIOXX [Suspect]
     Indication: OSTEOARTHRITIS
     Route: 048
     Dates: start: 20031016, end: 20031118
  12. ZOPICLONE [Suspect]
     Indication: INSOMNIA
     Route: 048
     Dates: start: 20000101, end: 20031127

REACTIONS (10)
  - ANXIETY [None]
  - ASTHENIA [None]
  - CHEST PAIN [None]
  - DEPRESSED LEVEL OF CONSCIOUSNESS [None]
  - DYSKINESIA [None]
  - DYSPNOEA [None]
  - GENITAL BURNING SENSATION [None]
  - HYPERTENSION [None]
  - NAUSEA [None]
  - PARAESTHESIA [None]
